FAERS Safety Report 7937703-8 (Version None)
Quarter: 2011Q4

REPORT INFORMATION
  Report Type: 
  Country: None (occurrence: None)
  Receive Date: 20111123
  Receipt Date: 20111116
  Transmission Date: 20120403
  Serious: Yes (Death, Hospitalization)
  Sender: FDA-Public Use
  Company Number: US-GLAXOSMITHKLINE-A0954366A

PATIENT
  Age: 54 Year
  Sex: Male
  Weight: 159.1 kg

DRUGS (6)
  1. ACCUPRIL [Concomitant]
  2. RELAFEN [Concomitant]
  3. AVANDIA [Suspect]
     Indication: DIABETES MELLITUS
     Dosage: 8MG PER DAY
     Route: 048
  4. GLUCOPHAGE [Concomitant]
  5. AMARYL [Concomitant]
  6. SYNTHROID [Concomitant]

REACTIONS (3)
  - CARDIAC FAILURE CONGESTIVE [None]
  - CORONARY ARTERY THROMBOSIS [None]
  - HYPOXIC-ISCHAEMIC ENCEPHALOPATHY [None]
